FAERS Safety Report 8346596-9 (Version None)
Quarter: 2012Q2

REPORT INFORMATION
  Report Type: 
  Country: None (occurrence: None)
  Receive Date: 20120509
  Receipt Date: 20120503
  Transmission Date: 20120825
  Serious: Yes (Hospitalization, Other)
  Sender: FDA-Public Use
  Company Number: PHHY2008DE11453

PATIENT
  Sex: Male
  Weight: 77 kg

DRUGS (4)
  1. SUNITINIB MALATE [Concomitant]
     Dosage: 50 MG, UNK
  2. CERTICAN [Concomitant]
     Dosage: 2 MG, UNK
  3. GLEEVEC [Suspect]
     Dosage: 400 MG, QD
     Route: 048
     Dates: start: 20071215, end: 20080612
  4. GLEEVEC [Suspect]
     Indication: GASTROINTESTINAL STROMAL TUMOUR
     Dosage: UNK UKN, UNK
     Route: 048
     Dates: start: 20070720, end: 20070726

REACTIONS (12)
  - ASPARTATE AMINOTRANSFERASE INCREASED [None]
  - ILEUS [None]
  - HEPATIC FIBROSIS [None]
  - NEOPLASM MALIGNANT [None]
  - HEPATIC NECROSIS [None]
  - HEPATITIS [None]
  - HEPATIC STEATOSIS [None]
  - GAMMA-GLUTAMYLTRANSFERASE INCREASED [None]
  - TRANSAMINASES INCREASED [None]
  - HEPATIC LESION [None]
  - ALANINE AMINOTRANSFERASE INCREASED [None]
  - NEOPLASM PROGRESSION [None]
